FAERS Safety Report 19394202 (Version 2)
Quarter: 2021Q2

REPORT INFORMATION
  Report Type: Report from Study
  Country: US (occurrence: US)
  Receive Date: 20210609
  Receipt Date: 20210629
  Transmission Date: 20210717
  Serious: No
  Sender: FDA-Public Use
  Company Number: US-BIOVITRUM-2021US2971

PATIENT
  Sex: Female

DRUGS (1)
  1. KINERET [Suspect]
     Active Substance: ANAKINRA
     Indication: RHEUMATOID ARTHRITIS
     Dosage: 100MG/0.67ML
     Route: 058
     Dates: start: 20210216

REACTIONS (4)
  - Localised infection [Unknown]
  - Arthralgia [Unknown]
  - Drug ineffective [Unknown]
  - Nausea [Unknown]
